APPROVED DRUG PRODUCT: XYWAV
Active Ingredient: CALCIUM OXYBATE; MAGNESIUM OXYBATE; POTASSIUM OXYBATE; SODIUM OXYBATE
Strength: 0.234GM/ML;0.096GM/ML;0.13GM/ML;0.04GM/ML
Dosage Form/Route: SOLUTION;ORAL
Application: N212690 | Product #001
Applicant: JAZZ PHARMACEUTICALS IRELAND LTD
Approved: Jul 21, 2020 | RLD: Yes | RS: Yes | Type: RX

PATENTS:
Patent 8772306 | Expires: Mar 15, 2033
Patent 11426373 | Expires: Sep 19, 2037
Patent 11986446 | Expires: Mar 15, 2033
Patent 11986446 | Expires: Mar 15, 2033
Patent 10675258 | Expires: Jan 11, 2033
Patent 9050302 | Expires: Mar 15, 2033
Patent 10213400 | Expires: Mar 15, 2033
Patent 9486426 | Expires: Mar 15, 2033
Patent 8772306 | Expires: Mar 15, 2033
Patent 10864181 | Expires: Mar 15, 2033
Patent 11253494 | Expires: Mar 15, 2033
Patent 11253494 | Expires: Mar 15, 2033
Patent 12138233 | Expires: Feb 22, 2041
Patent 9132107 | Expires: Jan 11, 2033
Patent 8901173 | Expires: Jan 11, 2033
Patent 10195168 | Expires: Jan 11, 2033
Patent 8591922 | Expires: Jan 11, 2033
Patent 11554102 | Expires: Jan 11, 2033
Patent 9486426*PED | Expires: Sep 15, 2033
Patent 11253494*PED | Expires: Sep 15, 2033
Patent 9050302*PED | Expires: Sep 15, 2033
Patent 10213400*PED | Expires: Sep 15, 2033
Patent 8772306*PED | Expires: Sep 15, 2033
Patent 10864181*PED | Expires: Sep 15, 2033

EXCLUSIVITY:
Code: ODE-361 | Date: Jul 21, 2027
Code: ODE-369 | Date: Aug 12, 2028
Code: PED | Date: Jan 21, 2028